FAERS Safety Report 9316397 (Version 4)
Quarter: 2013Q3

REPORT INFORMATION
  Report Type: Report from Study
  Country: US (occurrence: US)
  Receive Date: 20130530
  Receipt Date: 20130809
  Transmission Date: 20140515
  Serious: Yes (Other)
  Sender: FDA-Public Use
  Company Number: US-JNJFOC-20130516836

PATIENT
  Age: 68 Year
  Sex: Female
  Weight: 49.9 kg

DRUGS (18)
  1. SIMPONI [Suspect]
     Indication: ANKYLOSING SPONDYLITIS
     Route: 058
     Dates: start: 201303
  2. SIMPONI [Suspect]
     Indication: ANKYLOSING SPONDYLITIS
     Route: 058
     Dates: start: 20130115
  3. SIMPONI [Suspect]
     Indication: ANKYLOSING SPONDYLITIS
     Route: 058
     Dates: start: 20130518
  4. CELEBREX [Concomitant]
     Indication: ANKYLOSING SPONDYLITIS
     Route: 048
     Dates: start: 20130115
  5. CELEBREX [Concomitant]
     Indication: ANKYLOSING SPONDYLITIS
     Dosage: TOTAL DAILY DOSE: 400MG
     Route: 048
     Dates: start: 2000
  6. METOPROLOL [Concomitant]
     Indication: HYPERTENSION
     Dosage: TAKING FOR SEVERAL YEARS
     Route: 048
  7. METOPROLOL [Concomitant]
     Indication: HYPERTENSION
     Dosage: TOTAL DAILY DOSE: 50MG
     Route: 048
     Dates: start: 20130314
  8. OMEPRAZOLE [Concomitant]
     Indication: GASTROOESOPHAGEAL REFLUX DISEASE
     Route: 048
     Dates: start: 20130314
  9. VITAMINS NOS [Concomitant]
     Route: 065
  10. CALCIUM [Concomitant]
     Route: 048
  11. BABY ASPIRIN [Concomitant]
  12. MILK THISTLE [Concomitant]
  13. RECLAST [Concomitant]
     Indication: OSTEOPOROSIS
     Dosage: 5MG/100ML; INFUSE 5G OTHER YEARLY.
     Route: 042
     Dates: start: 2009
  14. ANTACID [Concomitant]
  15. ASPIRIN [Concomitant]
     Route: 048
  16. MUPIROCIN CALCIUM [Concomitant]
     Indication: SUBCUTANEOUS ABSCESS
     Dosage: APPLY AND GENTLY MASSAGE INTO AFFECTED AREA
     Route: 065
     Dates: start: 20130501
  17. SMZ-TMP DS [Concomitant]
     Indication: SUBCUTANEOUS ABSCESS
     Dosage: 800-160MG
     Route: 048
     Dates: start: 20130501
  18. NSAIDS [Concomitant]
     Route: 065

REACTIONS (12)
  - Cyst [Recovered/Resolved]
  - Furuncle [Recovered/Resolved]
  - Abdominal pain upper [Not Recovered/Not Resolved]
  - Insomnia [Recovered/Resolved]
  - Vomiting [Recovered/Resolved]
  - Hyperhidrosis [Recovered/Resolved]
  - Feeling hot [Recovered/Resolved]
  - Chills [Recovered/Resolved]
  - Retching [Recovered/Resolved]
  - Injection site reaction [Not Recovered/Not Resolved]
  - Influenza like illness [Not Recovered/Not Resolved]
  - Gastroenteritis [Recovered/Resolved]
